FAERS Safety Report 21644826 (Version 3)
Quarter: 2023Q2

REPORT INFORMATION
  Report Type: Spontaneous
  Country: JP (occurrence: JP)
  Receive Date: 20221125
  Receipt Date: 20230607
  Transmission Date: 20230722
  Serious: Yes (Other)
  Sender: FDA-Public Use
  Company Number: JP-ELI_LILLY_AND_COMPANY-JP202211008690

PATIENT
  Age: 70 Year
  Sex: Female

DRUGS (2)
  1. CYRAMZA [Suspect]
     Active Substance: RAMUCIRUMAB
     Indication: Non-small cell lung cancer
     Dosage: 10 MG/KG, CYCLICAL
     Route: 041
     Dates: start: 202105, end: 202304
  2. TARCEVA [Suspect]
     Active Substance: ERLOTINIB HYDROCHLORIDE
     Indication: Non-small cell lung cancer
     Dosage: 150 MG, CYCLICAL
     Route: 048
     Dates: start: 202105, end: 202304

REACTIONS (9)
  - Pulmonary fibrosis [Not Recovered/Not Resolved]
  - Aortic dissection [Recovering/Resolving]
  - Malignant neoplasm progression [Unknown]
  - Weight decreased [Unknown]
  - Rash [Unknown]
  - Stomatitis [Unknown]
  - Diarrhoea [Unknown]
  - Hypertension [Unknown]
  - Proteinuria [Unknown]

NARRATIVE: CASE EVENT DATE: 20221101
